FAERS Safety Report 5146896-X (Version None)
Quarter: 2006Q4

REPORT INFORMATION
  Report Type: 
  Country: None (occurrence: None)
  Receive Date: 20061109
  Receipt Date: 20061016
  Transmission Date: 20070319
  Serious: Yes (Other)
  Sender: FDA-Public Use
  Company Number: PHBS2006ZA16136

PATIENT
  Age: 46 Year
  Sex: Female
  Weight: 120 kg

DRUGS (1)
  1. GLEEVEC [Suspect]
     Indication: CHRONIC MYELOID LEUKAEMIA
     Dosage: UNK, UNK
     Route: 065
     Dates: start: 20040101, end: 20060930

REACTIONS (1)
  - ACUTE LYMPHOCYTIC LEUKAEMIA [None]
